FAERS Safety Report 10150333 (Version 1)
Quarter: 2014Q2

REPORT INFORMATION
  Report Type: Spontaneous
  Country: GB (occurrence: GB)
  Receive Date: 20140502
  Receipt Date: 20140502
  Transmission Date: 20141212
  Serious: Yes (Disabling, Other)
  Sender: FDA-Public Use
  Company Number: PHHY2014GB050554

PATIENT
  Age: 47 Year
  Sex: Female
  Weight: 63.5 kg

DRUGS (6)
  1. DOXYCYCLINE [Suspect]
     Indication: EYE INFLAMMATION
     Dosage: 100 MG
     Route: 048
     Dates: start: 20130101
  2. DOXYCYCLINE [Suspect]
     Dosage: 50 MG
     Route: 048
     Dates: end: 20131001
  3. FEMSEVEN [Concomitant]
     Dates: start: 20100601
  4. LEVOTHYROXINE SODIUM [Concomitant]
     Dates: start: 20060501
  5. LIOTHYRONINE SODIUM [Concomitant]
     Dates: start: 20120601
  6. PROGESTERONE [Concomitant]
     Dates: start: 20100601

REACTIONS (16)
  - Tendonitis [Recovering/Resolving]
  - Muscle atrophy [Recovering/Resolving]
  - Muscular weakness [Recovering/Resolving]
  - Immobile [Recovering/Resolving]
  - Condition aggravated [Not Recovered/Not Resolved]
  - Neuralgia [Recovering/Resolving]
  - Fatigue [Recovering/Resolving]
  - Pain [Recovering/Resolving]
  - Pyrexia [Recovered/Resolved]
  - Chills [Recovered/Resolved]
  - Night sweats [Recovered/Resolved]
  - Dry eye [Not Recovered/Not Resolved]
  - Dry mouth [Not Recovered/Not Resolved]
  - Nasal dryness [Not Recovered/Not Resolved]
  - Blister [Recovering/Resolving]
  - Pain of skin [Recovering/Resolving]
